FAERS Safety Report 9615916 (Version 4)
Quarter: 2014Q1

REPORT INFORMATION
  Report Type: Report from Study
  Country: JP (occurrence: JP)
  Receive Date: 20131011
  Receipt Date: 20140228
  Transmission Date: 20141002
  Serious: Yes (Death, Life-Threatening, Hospitalization)
  Sender: FDA-Public Use
  Company Number: JP-PFIZER INC-2013288100

PATIENT
  Age: 62 Year
  Sex: Male
  Weight: 61.3 kg

DRUGS (8)
  1. XALKORI [Suspect]
     Indication: NON-SMALL CELL LUNG CANCER
     Dosage: 250 MG, 2X/DAY
     Route: 048
     Dates: start: 20130108, end: 20130112
  2. LOXONIN [Concomitant]
     Dosage: 60 MG, 3X/DAY
     Route: 048
  3. MYSLEE [Concomitant]
     Dosage: 5 MG, 1X/DAY
     Route: 048
  4. MAGMITT [Concomitant]
     Dosage: 990 MG, 3X/DAY
     Route: 048
  5. TAKEPRON OD [Concomitant]
     Dosage: 30 MG, 1X/DAY
     Route: 048
  6. FENTOS TAPE [Concomitant]
     Dosage: 4 MG, 1X/DAY
     Route: 062
  7. ROZEREM [Concomitant]
     Dosage: 8 MG, 1X/DAY
     Route: 048
  8. PURSENNID [Concomitant]
     Dosage: 12 MG, 1X/DAY
     Route: 048

REACTIONS (3)
  - Disease progression [Fatal]
  - Non-small cell lung cancer [Fatal]
  - Interstitial lung disease [Recovering/Resolving]
